FAERS Safety Report 21836883 (Version 1)
Quarter: 2023Q1

REPORT INFORMATION
  Report Type: Spontaneous
  Country: US (occurrence: None)
  Receive Date: 20230106
  Receipt Date: 20230106
  Transmission Date: 20230418
  Serious: Yes (Other)
  Sender: FDA-Public Use
  Company Number: None

PATIENT
  Age: 85 Year
  Sex: Male
  Weight: 97.1 kg

DRUGS (11)
  1. VEKLURY [Suspect]
     Active Substance: REMDESIVIR
     Indication: COVID-19
     Dosage: FREQUENCY : DAILY;?
     Route: 041
     Dates: start: 20230102, end: 20230104
  2. Tocilizumab 760 mg IVPB (single dose) [Concomitant]
     Dates: start: 20230101, end: 20230101
  3. Azithromycin 500 mg PO daily [Concomitant]
     Dates: start: 20230101, end: 20230103
  4. Ceftriaxone 1 gram IVPB daily [Concomitant]
     Dates: start: 20230101
  5. Methylprednisolone 40 mg IVP Q12H [Concomitant]
     Dates: start: 20230101, end: 20230105
  6. Enoxaparin 40 mg SUBQ daily [Concomitant]
     Dates: start: 20230101
  7. Dexmedetomidine titrated IV infusion [Concomitant]
     Dates: start: 20230102, end: 20230103
  8. Haloperidol 5 mg IVP Q4H PRN agitation [Concomitant]
     Dates: start: 20230102, end: 20230103
  9. Tamsulosin 0.4 mg PO daily [Concomitant]
     Dates: start: 20230101
  10. Venlafaxine ER 37.5 mg PO daily [Concomitant]
     Dates: start: 20230101
  11. Aspirin EC 81 mg PO daily [Concomitant]
     Dates: start: 20230101

REACTIONS (4)
  - Bradycardia [None]
  - Infusion related reaction [None]
  - Agitation [None]
  - Therapy interrupted [None]

NARRATIVE: CASE EVENT DATE: 20230102
